FAERS Safety Report 4845962-3 (Version None)
Quarter: 2005Q4

REPORT INFORMATION
  Report Type: 
  Country: None (occurrence: None)
  Receive Date: 20051130
  Receipt Date: 20051104
  Transmission Date: 20060501
  Serious: No
  Sender: FDA-Public Use
  Company Number: 23731-2005-00002

PATIENT

DRUGS (4)
  1. ENDOSOL EXTRA [Suspect]
     Indication: EYE IRRIGATION
     Dosage: SEE IMAGE
  2. VANCOMYCIN [Concomitant]
  3. EPINEPHRINE [Concomitant]
  4. MEDICAL DEVICE (S) [Concomitant]

REACTIONS (3)
  - ANTERIOR CHAMBER DISORDER [None]
  - EYE OPERATION COMPLICATION [None]
  - PHARMACEUTICAL PRODUCT COMPLAINT [None]
